FAERS Safety Report 4483777-9 (Version None)
Quarter: 2004Q4

REPORT INFORMATION
  Report Type: 
  Country: None (occurrence: None)
  Receive Date: 20041025
  Receipt Date: 20041015
  Transmission Date: 20050328
  Serious: Yes (Hospitalization)
  Sender: FDA-Public Use
  Company Number: ES-ABBOTT-04P-050-0277879-00

PATIENT
  Sex: Male

DRUGS (5)
  1. RITONAVIR SOFT GELATIN CAPSULES [Suspect]
     Indication: HIV INFECTION
     Route: 048
     Dates: start: 20031110
  2. SAQUINAVIR [Concomitant]
     Indication: HIV INFECTION
     Dates: start: 20031110
  3. TENOFOVIR [Concomitant]
     Indication: HIV INFECTION
     Route: 048
     Dates: start: 20031110
  4. DIDANOSINE [Concomitant]
     Indication: HIV INFECTION
     Route: 048
     Dates: start: 20031110, end: 20040705
  5. OMEPRAZOLE [Concomitant]
     Indication: PROPHYLAXIS AGAINST GASTROINTESTINAL ULCER
     Route: 048
     Dates: start: 20040401

REACTIONS (17)
  - ABDOMINAL PAIN [None]
  - ARTHRITIS [None]
  - B-CELL LYMPHOMA [None]
  - BLOOD DISORDER [None]
  - CANDIDIASIS [None]
  - DIARRHOEA [None]
  - DRUG TOXICITY [None]
  - FEBRILE NEUTROPENIA [None]
  - GASTROINTESTINAL HAEMORRHAGE [None]
  - HERPES SIMPLEX [None]
  - LYMPHOMA [None]
  - NEUTROPENIA [None]
  - POLYNEUROPATHY [None]
  - PYREXIA [None]
  - SEPSIS [None]
  - URINARY TRACT INFECTION [None]
  - UROSEPSIS [None]
